FAERS Safety Report 19149472 (Version 2)
Quarter: 2021Q2

REPORT INFORMATION
  Report Type: Report from Study
  Country: None (occurrence: FR)
  Receive Date: 20210417
  Receipt Date: 20210606
  Transmission Date: 20210717
  Serious: Yes (Other)
  Sender: FDA-Public Use
  Company Number: FR-ABBVIE-21K-056-3864876-00

PATIENT
  Age: 55 Year
  Sex: Male

DRUGS (2)
  1. DUODOPA [Suspect]
     Active Substance: CARBIDOPA\LEVODOPA
     Indication: PARKINSON^S DISEASE
     Route: 050
     Dates: start: 201610
  2. DUODOPA [Suspect]
     Active Substance: CARBIDOPA\LEVODOPA

REACTIONS (9)
  - Freezing phenomenon [Unknown]
  - Feeling abnormal [Unknown]
  - Dystonia [Unknown]
  - Compulsive shopping [Unknown]
  - Gait disturbance [Unknown]
  - Hallucination, visual [Unknown]
  - Overdose [Unknown]
  - Drug dependence [Unknown]
  - Movement disorder [Unknown]
